FAERS Safety Report 8003172-5 (Version None)
Quarter: 2011Q4

REPORT INFORMATION
  Report Type: 
  Country: None (occurrence: None)
  Receive Date: 20111219
  Receipt Date: 20111206
  Transmission Date: 20120403
  Serious: Yes (Hospitalization)
  Sender: FDA-Public Use
  Company Number: TCI2011A06292

PATIENT
  Age: 76 Year
  Sex: Female

DRUGS (7)
  1. AMLODIPINE [Suspect]
     Dosage: 2.5 MG (2.5 MG, 1 IN 1 D)
     Route: 048
     Dates: end: 20111116
  2. SLOW-K [Suspect]
     Dosage: 1200 MG (1200 MG, 1 IN 1 D)
     Route: 048
     Dates: end: 20111116
  3. RISPERIDONE [Suspect]
     Dosage: 1 MG (1 MG, 1 IN 1 D)
     Route: 048
     Dates: end: 20111116
  4. CHLORPROMAZINE HCL [Suspect]
     Dosage: 12.5 MG (12.5 MG, 1 IN 1 D)
     Route: 048
     Dates: start: 20110801, end: 20111116
  5. YOKUKAN-SAN OSUGI (HERBAL EXTRACT NOS) [Suspect]
     Dosage: 7.5 GM (2.5 GM, 3 IN 1 D)
     Dates: end: 20111116
  6. ROZEREM [Suspect]
     Indication: INSOMNIA
     Dosage: 8 MG (8 MG, 1 IN 1 D)
     Route: 048
     Dates: end: 20111116
  7. EPINASTINE HYDROCHLORIDE [Suspect]
     Dosage: 20 MG (20 MG, 1 IN 1 D)
     Route: 048
     Dates: end: 20111116

REACTIONS (4)
  - LIVER DISORDER [None]
  - JAUNDICE [None]
  - ASPARTATE AMINOTRANSFERASE INCREASED [None]
  - ALANINE AMINOTRANSFERASE INCREASED [None]
